FAERS Safety Report 11740629 (Version 2)
Quarter: 2015Q4

REPORT INFORMATION
  Report Type: Spontaneous
  Country: US (occurrence: US)
  Receive Date: 20151110
  Receipt Date: 20151120
  Transmission Date: 20160304
  Serious: No
  Sender: FDA-Public Use
  Company Number: US-ELI_LILLY_AND_COMPANY-US201204000123

PATIENT
  Age: 74 Year
  Sex: Female

DRUGS (2)
  1. FORTEO [Suspect]
     Active Substance: TERIPARATIDE
     Dosage: UNK UNK, QDQ
  2. FORTEO [Suspect]
     Active Substance: TERIPARATIDE
     Dosage: UNK, UNKNOWN

REACTIONS (10)
  - Speech disorder [Unknown]
  - Bone density abnormal [Unknown]
  - Viral infection [Unknown]
  - Muscle strain [Unknown]
  - Asthma [Unknown]
  - Mobility decreased [Unknown]
  - Back injury [Unknown]
  - Fall [Unknown]
  - Injection site pain [Unknown]
  - Drug dose omission [Unknown]

NARRATIVE: CASE EVENT DATE: 201202
